FAERS Safety Report 8374361 (Version 2)
Quarter: 2013Q2

REPORT INFORMATION
  Report Type: Spontaneous
  Country: US (occurrence: None)
  Receive Date: 20111221
  Receipt Date: 20121227
  Transmission Date: 20140414
  Serious: Yes (Hospitalization)
  Sender: FDA-Public Use
  Company Number: PHHY2011US40964

PATIENT
  Age: 21 Year
  Sex: Female

DRUGS (7)
  1. EXJADE [Suspect]
     Indication: SICKLE CELL ANAEMIA
     Route: 048
  2. EXJADE [Suspect]
     Indication: IRON OVERLOAD
     Route: 048
  3. DESFERAL (DEFEROXAMINE MESILATE) [Concomitant]
  4. FOLIC ACID (FOLIC ACID) [Concomitant]
  5. BETHANECHOL (BETHANECHOL) [Concomitant]
  6. MACRODANTIN (NITROFURANTOIN) [Concomitant]
  7. TRANSFUSIONS (NO INGREDIENTS/SUBSTANCES) [Concomitant]

REACTIONS (5)
  - SICKLE CELL ANAEMIA WITH CRISIS [None]
  - VOMITING [None]
  - ABDOMINAL DISCOMFORT [None]
  - MATERNAL EXPOSURE DURING PREGNANCY [None]
  - NORMAL NEWBORN [None]
